FAERS Safety Report 17125130 (Version 5)
Quarter: 2020Q1

REPORT INFORMATION
  Report Type: Spontaneous
  Country: US (occurrence: US)
  Receive Date: 20191206
  Receipt Date: 20200309
  Transmission Date: 20200409
  Serious: Yes (Hospitalization, Other)
  Sender: FDA-Public Use
  Company Number: US-GILEAD-2019-0441360

PATIENT
  Age: 57 Year
  Sex: Female
  Weight: 80.3 kg

DRUGS (17)
  1. COMPAZINE [Concomitant]
     Active Substance: PROCHLORPERAZINE MALEATE
  2. CYCLOPHOSPHAMIDE. [Concomitant]
     Active Substance: CYCLOPHOSPHAMIDE
     Indication: BONE MARROW CONDITIONING REGIMEN
     Route: 065
  3. CEFEPIME [Concomitant]
     Active Substance: CEFEPIME HYDROCHLORIDE
     Dosage: UNK
     Dates: start: 20190709
  4. LIPITOR [Concomitant]
     Active Substance: ATORVASTATIN CALCIUM
  5. YESCARTA [Suspect]
     Active Substance: AXICABTAGENE CILOLEUCEL
     Indication: NON-HODGKIN^S LYMPHOMA
     Dosage: UNK
     Route: 042
     Dates: start: 20191111, end: 20191111
  6. METOPROLOL. [Concomitant]
     Active Substance: METOPROLOL
  7. ACYCLOVIR [ACICLOVIR] [Concomitant]
     Active Substance: ACYCLOVIR
  8. MERREM [Concomitant]
     Active Substance: MEROPENEM
  9. MAGNESIUM OXIDE. [Concomitant]
     Active Substance: MAGNESIUM OXIDE
  10. PROTONIX [OMEPRAZOLE] [Concomitant]
     Active Substance: OMEPRAZOLE
  11. FLUDARABINE [Concomitant]
     Active Substance: FLUDARABINE PHOSPHATE
     Indication: BONE MARROW CONDITIONING REGIMEN
     Route: 065
  12. VANCOMYCIN [VANCOMYCIN HYDROCHLORIDE] [Concomitant]
     Active Substance: VANCOMYCIN HYDROCHLORIDE
     Indication: PROPHYLAXIS
     Dosage: UNK
     Dates: start: 20190709, end: 20191120
  13. OXYCODONE [Concomitant]
     Active Substance: OXYCODONE
     Indication: PAIN
  14. CARDIAZEM [DILTIAZEM] [Concomitant]
  15. LABETALOL [Concomitant]
     Active Substance: LABETALOL\LABETALOL HYDROCHLORIDE
  16. HUMALOG [Concomitant]
     Active Substance: INSULIN LISPRO
     Indication: DIABETES MELLITUS
     Dosage: UNK
     Dates: start: 20190509
  17. DIAZEPAM. [Concomitant]
     Active Substance: DIAZEPAM
     Indication: MUSCLE SPASMS
     Dosage: UNK
     Dates: start: 20190509

REACTIONS (12)
  - Dysuria [Unknown]
  - Ketosis [Recovered/Resolved]
  - Abdominal pain [Not Recovered/Not Resolved]
  - Candida infection [Recovered/Resolved]
  - Hypernatraemia [Unknown]
  - Ear pain [Unknown]
  - Diabetic ketoacidosis [Recovered/Resolved]
  - Feeding tube user [Recovered/Resolved]
  - Pancytopenia [Unknown]
  - Cytokine release syndrome [Recovered/Resolved]
  - Hyperchloraemia [Unknown]
  - Neurotoxicity [Recovered/Resolved]

NARRATIVE: CASE EVENT DATE: 20191116
